FAERS Safety Report 23643816 (Version 1)
Quarter: 2024Q1

REPORT INFORMATION
  Report Type: Spontaneous
  Country: US (occurrence: None)
  Receive Date: 20240316
  Receipt Date: 20240316
  Transmission Date: 20240410
  Serious: Yes (Other)
  Sender: FDA-Public Use
  Company Number: None

PATIENT
  Age: 53 Year
  Sex: Female
  Weight: 66.6 kg

DRUGS (4)
  1. PREDNISONE [Suspect]
     Active Substance: PREDNISONE
     Indication: Inflammation
     Dates: start: 20240305, end: 20240310
  2. MULTI-VITAMIN [Concomitant]
     Active Substance: .ALPHA.-TOCOPHEROL ACETATE, DL-\ASCORBIC ACID\CYANOCOBALAMIN\FLUORIDE ION\FOLIC ACID\NIACIN\PYRIDOXI
  3. vegan protein powder [Concomitant]
  4. marine collegen powder [Concomitant]

REACTIONS (9)
  - Dizziness [None]
  - Tinnitus [None]
  - Tachyphrenia [None]
  - Insomnia [None]
  - Flushing [None]
  - Taste disorder [None]
  - Tachycardia [None]
  - Palpitations [None]
  - Vertigo [None]

NARRATIVE: CASE EVENT DATE: 20240313
